FAERS Safety Report 4847986-9 (Version None)
Quarter: 2005Q4

REPORT INFORMATION
  Report Type: 
  Country: None (occurrence: None)
  Receive Date: 20051206
  Receipt Date: 20051121
  Transmission Date: 20060501
  Serious: Yes (Other)
  Sender: FDA-Public Use
  Company Number: USA0511112799

PATIENT
  Age: 14 Year
  Sex: Male
  Weight: 42.6 kg

DRUGS (3)
  1. STRATTERA [Suspect]
     Indication: ATTENTION DEFICIT/HYPERACTIVITY DISORDER
     Dosage: 25 MG, UNK; ORAL, 40 MG, DAILY (1/D); ORAL
     Route: 048
     Dates: start: 20050809, end: 20050101
  2. STRATTERA [Suspect]
     Indication: ATTENTION DEFICIT/HYPERACTIVITY DISORDER
     Dosage: 25 MG, UNK; ORAL, 40 MG, DAILY (1/D); ORAL
     Route: 048
     Dates: start: 20050101, end: 20051104
  3. CONCERTA [Concomitant]

REACTIONS (3)
  - AGGRESSION [None]
  - EMOTIONAL DISORDER [None]
  - SELF INJURIOUS BEHAVIOUR [None]
